FAERS Safety Report 4996960-0 (Version None)
Quarter: 2006Q2

REPORT INFORMATION
  Report Type: 
  Country: None (occurrence: None)
  Receive Date: 20060509
  Receipt Date: 20051103
  Transmission Date: 20061013
  Serious: Yes (Hospitalization, Disabling)
  Sender: FDA-Public Use
  Company Number: US-ROCHE-423817

PATIENT
  Sex: Female
  Weight: 56.7 kg

DRUGS (1)
  1. ACCUTANE [Suspect]
     Indication: ACNE
     Route: 048
     Dates: start: 19920615, end: 19930615

REACTIONS (33)
  - ABORTION INDUCED [None]
  - ALOPECIA [None]
  - ANAEMIA [None]
  - ANXIETY [None]
  - BLOOD TRIGLYCERIDES INCREASED [None]
  - BONE DENSITY DECREASED [None]
  - COLITIS [None]
  - COLITIS ULCERATIVE [None]
  - CROHN'S DISEASE [None]
  - DECREASED INTEREST [None]
  - DEPRESSED MOOD [None]
  - DISTRACTIBILITY [None]
  - DISTURBANCE IN ATTENTION [None]
  - FEAR [None]
  - FLAT AFFECT [None]
  - GASTROINTESTINAL DISORDER [None]
  - GASTROOESOPHAGEAL REFLUX DISEASE [None]
  - INFLAMMATORY BOWEL DISEASE [None]
  - INSOMNIA [None]
  - INTESTINAL HAEMORRHAGE [None]
  - IRON DEFICIENCY [None]
  - IRON DEFICIENCY ANAEMIA [None]
  - IRRITABILITY [None]
  - MENTAL DISORDER [None]
  - OSTEOPENIA [None]
  - PHARYNGOLARYNGEAL PAIN [None]
  - PLATELET COUNT INCREASED [None]
  - POLYTRAUMATISM [None]
  - PREGNANCY ON ORAL CONTRACEPTIVE [None]
  - PYREXIA [None]
  - RESTLESSNESS [None]
  - SELF ESTEEM DECREASED [None]
  - SINUS HEADACHE [None]
